FAERS Safety Report 8005912-8 (Version None)
Quarter: 2011Q4

REPORT INFORMATION
  Report Type: 
  Country: None (occurrence: None)
  Receive Date: 20111223
  Receipt Date: 20111219
  Transmission Date: 20120403
  Serious: Yes (Death, Other)
  Sender: FDA-Public Use
  Company Number: CN-ASTRAZENECA-2011SE76319

PATIENT
  Age: 47 Year
  Sex: Female

DRUGS (2)
  1. FENTANYL [Suspect]
     Indication: ANAESTHESIA PROCEDURE
     Route: 065
  2. PROPOFOL [Suspect]
     Indication: ANAESTHESIA PROCEDURE
     Route: 042

REACTIONS (2)
  - LUNG INFECTION [None]
  - HYPOXIC-ISCHAEMIC ENCEPHALOPATHY [None]
